FAERS Safety Report 6557389-7 (Version None)
Quarter: 2010Q1

REPORT INFORMATION
  Report Type: 
  Country: None (occurrence: None)
  Receive Date: 20100127
  Receipt Date: 20100127
  Transmission Date: 20100710
  Serious: Yes (Life-Threatening)
  Sender: FDA-Public Use
  Company Number: None

PATIENT
  Age: 79 Year
  Sex: Female
  Weight: 54 kg

DRUGS (1)
  1. AMIODARONE HCL [Suspect]
     Indication: ATRIAL FIBRILLATION
     Dosage: 150 MG ONCE IV BOLUS
     Route: 040
     Dates: start: 20100125, end: 20100125

REACTIONS (7)
  - APNOEA [None]
  - BRADYCARDIA [None]
  - CONVULSION [None]
  - HEADACHE [None]
  - HYPERHIDROSIS [None]
  - HYPOTENSION [None]
  - UNRESPONSIVE TO STIMULI [None]
